FAERS Safety Report 11745857 (Version 3)
Quarter: 2017Q3

REPORT INFORMATION
  Report Type: Report from Study
  Country: US (occurrence: US)
  Receive Date: 20151117
  Receipt Date: 20170815
  Transmission Date: 20171127
  Serious: Yes (Death)
  Sender: FDA-Public Use
  Company Number: US-ROCHE-1662234

PATIENT
  Sex: Male

DRUGS (5)
  1. CARBOPLATIN. [Suspect]
     Active Substance: CARBOPLATIN
     Indication: GERM CELL NEOPLASM
     Dosage: OVER 2 HOURS
     Route: 042
  2. GEMCITABINE [Suspect]
     Active Substance: GEMCITABINE\GEMCITABINE HYDROCHLORIDE
     Indication: GERM CELL NEOPLASM
     Dosage: OVER 3 HOURS
     Route: 042
  3. DOCETAXEL. [Suspect]
     Active Substance: DOCETAXEL
     Indication: GERM CELL NEOPLASM
     Dosage: OVER 3 HOURS
     Route: 042
  4. BEVACIZUMAB. [Suspect]
     Active Substance: BEVACIZUMAB
     Indication: GERM CELL NEOPLASM
     Route: 042
  5. MELPHALAN. [Suspect]
     Active Substance: MELPHALAN
     Indication: GERM CELL NEOPLASM
     Dosage: OVER 15 MINUTES
     Route: 042

REACTIONS (1)
  - Cardiomyopathy [Fatal]
